FAERS Safety Report 6746970-8 (Version None)
Quarter: 2010Q2

REPORT INFORMATION
  Report Type: 
  Country: None (occurrence: None)
  Receive Date: 20100528
  Receipt Date: 20100217
  Transmission Date: 20101027
  Serious: No
  Sender: FDA-Public Use
  Company Number: US-ASTRAZENECA-2010SE07530

PATIENT
  Age: 83 Year
  Sex: Female

DRUGS (1)
  1. PRILOSEC OTC [Suspect]
     Indication: GASTRITIS
     Route: 048
     Dates: start: 20100217, end: 20100217

REACTIONS (2)
  - SENSATION OF FOREIGN BODY [None]
  - THROAT IRRITATION [None]
